FAERS Safety Report 4324719-6 (Version None)
Quarter: 2004Q1

REPORT INFORMATION
  Report Type: 
  Country: None (occurrence: None)
  Receive Date: 20040323
  Receipt Date: 20040311
  Transmission Date: 20041129
  Serious: Yes (Hospitalization)
  Sender: FDA-Public Use
  Company Number: 2004-03-0700

PATIENT
  Age: 40 Year
  Sex: Female

DRUGS (14)
  1. GENTAMICIN SULFATE [Suspect]
     Indication: PREMEDICATION
     Dosage: SEE IMAGE
     Route: 042
     Dates: start: 20040115, end: 20040115
  2. GENTAMICIN SULFATE [Suspect]
     Indication: PREMEDICATION
     Dosage: SEE IMAGE
     Route: 042
     Dates: start: 20040121, end: 20040121
  3. TARGOCID [Suspect]
     Indication: PREMEDICATION
     Dosage: SEE IMAGE
     Route: 042
     Dates: start: 20040115, end: 20040121
  4. TARGOCID [Suspect]
     Indication: PREMEDICATION
     Dosage: SEE IMAGE
     Route: 042
     Dates: start: 20040121, end: 20040121
  5. KETOPROFEN [Suspect]
     Indication: PREMEDICATION
     Dosage: 150 MG ORAL
     Route: 048
     Dates: start: 20040107, end: 20040120
  6. AUGMENTIN ES-600 [Suspect]
     Indication: PREMEDICATION
     Dosage: 2 GMS INTRAVENOUS
     Route: 042
     Dates: start: 20040121, end: 20040121
  7. OMEPRAZOLE [Suspect]
     Indication: DRUG USE FOR UNKNOWN INDICATION
     Dosage: 1 DOSE FORM ORAL
     Route: 048
     Dates: start: 20040107, end: 20040120
  8. BACTRIM DS [Suspect]
     Indication: DRUG USE FOR UNKNOWN INDICATION
     Dosage: 2 DOSE FORMS ORAL
     Route: 048
     Dates: start: 20040115, end: 20040120
  9. ATARAX [Concomitant]
  10. MORPHINE [Concomitant]
  11. TAGAMET [Concomitant]
  12. PRIMPERAN INJ [Concomitant]
  13. IMOVANE [Concomitant]
  14. OXYBUTYNIN HYDROCHLORIDE [Concomitant]

REACTIONS (5)
  - DERMATITIS BULLOUS [None]
  - LUNG DISORDER [None]
  - PRURIGO [None]
  - RASH ERYTHEMATOUS [None]
  - TOXIC EPIDERMAL NECROLYSIS [None]
